FAERS Safety Report 23686334 (Version 1)
Quarter: 2024Q1

REPORT INFORMATION
  Report Type: Spontaneous
  Country: US (occurrence: US)
  Receive Date: 20240329
  Receipt Date: 20240329
  Transmission Date: 20240410
  Serious: No
  Sender: FDA-Public Use
  Company Number: US-BRISTOL-MYERS SQUIBB COMPANY-2024-049639

PATIENT
  Age: 70 Year
  Sex: Male
  Weight: 51.26 kg

DRUGS (1)
  1. LENALIDOMIDE [Suspect]
     Active Substance: LENALIDOMIDE
     Indication: Plasma cell myeloma in remission
     Route: 048
     Dates: start: 20240216

REACTIONS (4)
  - Constipation [Unknown]
  - Abdominal pain [Unknown]
  - Pruritus [Unknown]
  - Off label use [Unknown]
